FAERS Safety Report 13880837 (Version 11)
Quarter: 2025Q3

REPORT INFORMATION
  Report Type: Spontaneous
  Country: US (occurrence: US)
  Receive Date: 20170818
  Receipt Date: 20250826
  Transmission Date: 20251020
  Serious: Yes (Hospitalization, Disabling, Other)
  Sender: PFIZER
  Company Number: US-PFIZER INC-2017355318

PATIENT
  Age: 67 Year
  Sex: Female
  Weight: 57.15 kg

DRUGS (2)
  1. XELJANZ [Suspect]
     Active Substance: TOFACITINIB CITRATE
     Indication: Rheumatoid arthritis
     Dosage: 5 MG, 2X/DAY
     Route: 048
  2. XELJANZ [Suspect]
     Active Substance: TOFACITINIB CITRATE
     Dosage: 10 MG, DAILY (XELJANZ 5MG 2 TABLET DAILY)

REACTIONS (6)
  - Memory impairment [Recovering/Resolving]
  - Neoplasm [Unknown]
  - Coronary artery bypass [Unknown]
  - Cardiac operation [Unknown]
  - Spinal operation [Unknown]
  - Muscle spasms [Unknown]

NARRATIVE: CASE EVENT DATE: 20150615
